FAERS Safety Report 19274690 (Version 1)
Quarter: 2021Q2

REPORT INFORMATION
  Report Type: Spontaneous
  Country: CA (occurrence: CA)
  Receive Date: 20210519
  Receipt Date: 20210519
  Transmission Date: 20210717
  Serious: Yes (Hospitalization)
  Sender: FDA-Public Use
  Company Number: CA-ASTRAZENECA-2021A422167

PATIENT
  Age: 80 Year
  Sex: Male
  Weight: 73 kg

DRUGS (9)
  1. NEURONTIN [Concomitant]
     Active Substance: GABAPENTIN
  2. ASA [Concomitant]
     Active Substance: ASPIRIN
  3. LOPROX [Concomitant]
     Active Substance: CICLOPIROX\CICLOPIROX OLAMINE
  4. ATACAND [Concomitant]
     Active Substance: CANDESARTAN CILEXETIL
  5. INSULIN [Concomitant]
     Active Substance: INSULIN NOS
  6. LIPITOR [Concomitant]
     Active Substance: ATORVASTATIN CALCIUM
  7. TRAJENTA [Concomitant]
     Active Substance: LINAGLIPTIN
  8. FORXIGA [Suspect]
     Active Substance: DAPAGLIFLOZIN
     Indication: DIABETES MELLITUS
     Route: 048
  9. GLUCOPHAGE [Concomitant]
     Active Substance: METFORMIN HYDROCHLORIDE

REACTIONS (1)
  - Euglycaemic diabetic ketoacidosis [Recovered/Resolved]
